FAERS Safety Report 5200860-0 (Version None)
Quarter: 2007Q1

REPORT INFORMATION
  Report Type: 
  Country: None (occurrence: None)
  Receive Date: 20070103
  Receipt Date: 20060822
  Transmission Date: 20070707
  Serious: Yes (Other)
  Sender: FDA-Public Use
  Company Number: 2006BH012982

PATIENT
  Age: 59 Year
  Sex: Female

DRUGS (2)
  1. EXTRANEAL [Suspect]
     Indication: PERITONEAL DIALYSIS
     Dosage: 2 L; IP
     Route: 033
  2. HUMAN INSULATARD [Concomitant]

REACTIONS (1)
  - HYPOGLYCAEMIA [None]
